FAERS Safety Report 20757502 (Version 2)
Quarter: 2022Q2

REPORT INFORMATION
  Report Type: Report from Study
  Country: AR (occurrence: AR)
  Receive Date: 20220427
  Receipt Date: 20220429
  Transmission Date: 20220720
  Serious: Yes (Death)
  Sender: FDA-Public Use
  Company Number: AR-NOVARTISPH-NVSC2022AR095839

PATIENT
  Sex: Female

DRUGS (4)
  1. TRAMETINIB [Suspect]
     Active Substance: TRAMETINIB
     Indication: Breast cancer metastatic
     Dosage: UNK
     Route: 065
     Dates: start: 20220221
  2. TRAMETINIB [Suspect]
     Active Substance: TRAMETINIB
     Indication: Hormone receptor positive HER2 negative breast cancer
  3. DABRAFENIB [Suspect]
     Active Substance: DABRAFENIB
     Indication: Breast cancer metastatic
     Dosage: UNK
     Route: 065
     Dates: start: 20220221
  4. DABRAFENIB [Suspect]
     Active Substance: DABRAFENIB
     Indication: Hormone receptor positive HER2 negative breast cancer

REACTIONS (1)
  - Death [Fatal]
